FAERS Safety Report 7041589-6 (Version None)
Quarter: 2010Q4

REPORT INFORMATION
  Report Type: 
  Country: None (occurrence: None)
  Receive Date: 20101013
  Receipt Date: 20100415
  Transmission Date: 20110411
  Serious: No
  Sender: FDA-Public Use
  Company Number: US-ASTRAZENECA-2010SE16728

PATIENT
  Age: 50 Year
  Sex: Female

DRUGS (4)
  1. SYMBICORT [Suspect]
     Indication: CHRONIC OBSTRUCTIVE PULMONARY DISEASE
     Dosage: 160/4.5 TWICE
     Route: 055
     Dates: start: 20100401, end: 20100401
  2. LISINOPRIL [Concomitant]
  3. VENTOLIN [Concomitant]
  4. ZITHROMAX [Concomitant]

REACTIONS (1)
  - SWOLLEN TONGUE [None]
